FAERS Safety Report 5597607-5 (Version None)
Quarter: 2008Q1

REPORT INFORMATION
  Report Type: 
  Country: None (occurrence: None)
  Receive Date: 20080121
  Receipt Date: 20080117
  Transmission Date: 20080703
  Serious: Yes (Death)
  Sender: FDA-Public Use
  Company Number: B0504106A

PATIENT
  Age: 31 Year
  Sex: Female

DRUGS (1)
  1. TYKERB [Suspect]
     Route: 048
     Dates: start: 20071001

REACTIONS (1)
  - DEATH [None]
